FAERS Safety Report 15868083 (Version 1)
Quarter: 2019Q1

REPORT INFORMATION
  Report Type: Spontaneous
  Country: US (occurrence: US)
  Receive Date: 20190125
  Receipt Date: 20190125
  Transmission Date: 20190417
  Serious: No
  Sender: FDA-Public Use
  Company Number: US-TEVA-2019-US-1001792

PATIENT
  Age: 40 Year
  Sex: Male

DRUGS (2)
  1. FLUDROCORTISONE ACETATE TABLETS TEVA [Suspect]
     Active Substance: FLUDROCORTISONE ACETATE
     Indication: ORTHOSTATIC HYPOTENSION
     Route: 065
     Dates: start: 201805
  2. FLUDROCORTISONE ACETATE TABLETS TEVA [Suspect]
     Active Substance: FLUDROCORTISONE ACETATE
     Route: 065
     Dates: start: 20190116

REACTIONS (4)
  - Chest pain [Unknown]
  - Product substitution issue [None]
  - Dizziness [Unknown]
  - Headache [Unknown]

NARRATIVE: CASE EVENT DATE: 201809
